FAERS Safety Report 17985332 (Version 1)
Quarter: 2020Q3

REPORT INFORMATION
  Report Type: Spontaneous
  Country: GB (occurrence: GB)
  Receive Date: 20200706
  Receipt Date: 20200706
  Transmission Date: 20201103
  Serious: Yes (Other)
  Sender: FDA-Public Use
  Company Number: GB-DEXPHARM-20200563

PATIENT
  Age: 73 Year
  Sex: Female
  Weight: 90 kg

DRUGS (11)
  1. FOSTAIR [Concomitant]
     Active Substance: BECLOMETHASONE\FORMOTEROL
     Dosage: USE AS DIRECTED
     Dates: start: 20180731
  2. HYLO?FORTE [Concomitant]
     Active Substance: HYALURONATE SODIUM
     Dosage: USE AS DIRECTED
     Dates: start: 20180731
  3. MONTELUKAST [Concomitant]
     Active Substance: MONTELUKAST SODIUM
     Dosage: TAKE AT NIGHT
     Dates: start: 20180731
  4. VISCOTEARS [Concomitant]
     Active Substance: CARBOMER
     Dosage: AS NECESSARY
     Dates: start: 20180731
  5. AMITRIPTYLINE HYDROCHLORIDE. [Concomitant]
     Active Substance: AMITRIPTYLINE HYDROCHLORIDE
     Dosage: TAKE AT NIGHT
     Dates: start: 20180731
  6. CEFALEXIN [Concomitant]
     Active Substance: CEPHALEXIN
     Dosage: TAKE ONE 4 TIMES/DAY FOR 14 DAYS
     Dates: start: 20191127
  7. OMEPRAZOLE. [Suspect]
     Active Substance: OMEPRAZOLE
     Dates: start: 20200415
  8. DOXYCYCLINE. [Concomitant]
     Active Substance: DOXYCYCLINE
     Dates: start: 20180731
  9. RANITIDINE. [Concomitant]
     Active Substance: RANITIDINE
     Dates: start: 20180731, end: 20200415
  10. SALBUTAMOL [Concomitant]
     Active Substance: ALBUTEROL
     Dosage: INHALE 1?2 PUFFS UP TO FOUR TIMES A DAY
     Route: 055
     Dates: start: 20180731
  11. PARACETAMOL [Concomitant]
     Active Substance: ACETAMINOPHEN
     Dosage: TAKE 1 OR 2, EVERY 4 HOURS, UP TO 4 TIMES A DAY
     Dates: start: 20180731

REACTIONS (1)
  - Bronchospasm [Recovered/Resolved]

NARRATIVE: CASE EVENT DATE: 20200604
